FAERS Safety Report 8889049 (Version 1)
Quarter: 2012Q4

REPORT INFORMATION
  Report Type: 
  Country: US (occurrence: US)
  Receive Date: 20121106
  Receipt Date: 20121106
  Transmission Date: 20130627
  Serious: Yes (Life-Threatening, Other)
  Sender: FDA-Public Use
  Company Number: US-009507513-0705USA01450

PATIENT

DRUGS (7)
  1. FOSAMAX [Suspect]
     Indication: OSTEOPOROSIS
     Dosage: 70 mg, UNK
     Route: 048
     Dates: start: 200505, end: 200605
  2. FOSAMAX [Suspect]
     Indication: OSTEOPENIA
  3. THERAPY UNSPECIFIED [Concomitant]
     Dosage: .118 mg, UNK
     Dates: start: 200202
  4. CELEXA [Concomitant]
     Indication: DEPRESSION
     Dosage: 20 mg, UNK
     Dates: start: 2000, end: 2004
  5. LIPITOR [Concomitant]
     Indication: BLOOD CHOLESTEROL INCREASED
     Dosage: 40 mg, UNK
     Dates: start: 20020502, end: 200610
  6. ASPIRIN [Concomitant]
     Dosage: 325 mg, UNK
     Dates: start: 2002
  7. VASOTEC [Concomitant]
     Dosage: 2.5 mg, UNK
     Dates: start: 20020220

REACTIONS (9)
  - Osteomyelitis [Unknown]
  - Osteonecrosis of jaw [Recovering/Resolving]
  - Oral candidiasis [Recovered/Resolved]
  - Depression [Unknown]
  - Anxiety [Unknown]
  - Osteitis [Unknown]
  - Gingivitis [Unknown]
  - Gingival recession [Unknown]
  - Gingival erosion [Unknown]
